FAERS Safety Report 4885217-4 (Version None)
Quarter: 2005Q4

REPORT INFORMATION
  Report Type: 
  Country: None (occurrence: None)
  Receive Date: 20051214
  Receipt Date: 20050822
  Transmission Date: 20060501
  Serious: Yes (Other)
  Sender: FDA-Public Use
  Company Number: S05-USA-03671-01

PATIENT
  Age: 50 Year
  Sex: Male

DRUGS (1)
  1. CAMPRAL (ACAMPROSTATE CALCIUM) [Suspect]

REACTIONS (1)
  - MYOCARDIAL INFARCTION [None]
